FAERS Safety Report 6845940-9 (Version None)
Quarter: 2010Q3

REPORT INFORMATION
  Report Type: 
  Country: None (occurrence: None)
  Receive Date: 20100715
  Receipt Date: 20070830
  Transmission Date: 20110219
  Serious: No
  Sender: FDA-Public Use
  Company Number: US-PFIZER INC-2007073934

PATIENT
  Sex: Female

DRUGS (1)
  1. CHANTIX [Suspect]
     Dates: start: 20070801

REACTIONS (4)
  - INCORRECT DOSE ADMINISTERED [None]
  - PRURITUS [None]
  - RASH PAPULAR [None]
  - VOMITING [None]
